FAERS Safety Report 17121122 (Version 1)
Quarter: 2019Q4

REPORT INFORMATION
  Report Type: Spontaneous
  Country: US (occurrence: US)
  Receive Date: 20191206
  Receipt Date: 20191206
  Transmission Date: 20200122
  Serious: No
  Sender: FDA-Public Use
  Company Number: US-UCBSA-2017024307

PATIENT
  Sex: Male

DRUGS (1)
  1. CIMZIA [Suspect]
     Active Substance: CERTOLIZUMAB PEGOL
     Indication: PSORIATIC ARTHROPATHY
     Dosage: 400 MG, EV 4 WEEKS (STRENGTH: 200 MG) (2 ML) AS 2 EQUALLY DIVIDED INJECTIONS
     Route: 058
     Dates: start: 201603, end: 2017

REACTIONS (2)
  - Ear infection [Unknown]
  - Arthralgia [Unknown]
